FAERS Safety Report 4979176-3 (Version None)
Quarter: 2006Q2

REPORT INFORMATION
  Report Type: 
  Country: None (occurrence: None)
  Receive Date: 20060421
  Receipt Date: 20060203
  Transmission Date: 20061013
  Serious: Yes (Other)
  Sender: FDA-Public Use
  Company Number: US-GLAXOSMITHKLINE-A0592306A

PATIENT
  Age: 48 Year
  Sex: Female

DRUGS (2)
  1. FLOVENT [Suspect]
     Indication: ASTHMA
     Dosage: 2SPR TWICE PER DAY
     Route: 055
     Dates: start: 20040101
  2. ALBUTEROL [Concomitant]

REACTIONS (4)
  - HEPATIC ENZYME INCREASED [None]
  - PHARMACEUTICAL PRODUCT COMPLAINT [None]
  - TINNITUS [None]
  - UPPER RESPIRATORY TRACT CONGESTION [None]
